FAERS Safety Report 10599683 (Version 2)
Quarter: 2014Q4

REPORT INFORMATION
  Report Type: Spontaneous
  Country: US (occurrence: US)
  Receive Date: 20141121
  Receipt Date: 20141222
  Transmission Date: 20150529
  Serious: No
  Sender: FDA-Public Use
  Company Number: US-009507513-1411USA009505

PATIENT
  Age: 86 Year
  Sex: Male
  Weight: 102.4 kg

DRUGS (2)
  1. ZANTAC [Concomitant]
     Active Substance: RANITIDINE HYDROCHLORIDE
     Indication: BLOOD CHOLESTEROL
     Dosage: 40 MG, QD
  2. MIRALAX [Suspect]
     Active Substance: POLYETHYLENE GLYCOL 3350
     Indication: RECTAL HAEMORRHAGE
     Dosage: 8.5 G, QPM
     Route: 048
     Dates: start: 20141115

REACTIONS (6)
  - Drug prescribing error [Unknown]
  - Drug ineffective [Unknown]
  - Underdose [Unknown]
  - Unevaluable event [Not Recovered/Not Resolved]
  - Off label use [Unknown]
  - Incorrect drug administration duration [Unknown]

NARRATIVE: CASE EVENT DATE: 201411
